FAERS Safety Report 4999694-1 (Version None)
Quarter: 2006Q2

REPORT INFORMATION
  Report Type: 
  Country: None (occurrence: None)
  Receive Date: 20060509
  Receipt Date: 20060509
  Transmission Date: 20061013
  Serious: No
  Sender: FDA-Public Use
  Company Number: None

PATIENT
  Age: 34 Year
  Sex: Male
  Weight: 73 kg

DRUGS (9)
  1. CEFEPIME [Suspect]
     Indication: PNEUMONIA
     Dosage: 1 GM IV Q 24 HRS
     Route: 042
  2. HEPARIN [Concomitant]
  3. NYSTATIN [Concomitant]
  4. GANCICLOVIR [Concomitant]
  5. MYCOPHENOLATE [Concomitant]
  6. LANSOPRAZOLE [Concomitant]
  7. THEROLIMUS [Concomitant]
  8. PREDNISONE TAB [Concomitant]
  9. INSULIN [Concomitant]

REACTIONS (4)
  - CLOSTRIDIUM DIFFICILE TOXIN TEST POSITIVE [None]
  - DIARRHOEA [None]
  - PYREXIA [None]
  - WHITE BLOOD CELL COUNT INCREASED [None]
